FAERS Safety Report 10641056 (Version 1)
Quarter: 2014Q4

REPORT INFORMATION
  Report Type: Spontaneous
  Country: US (occurrence: None)
  Receive Date: 20141208
  Receipt Date: 20141208
  Transmission Date: 20150529
  Serious: No
  Sender: FDA-Public Use
  Company Number: None

PATIENT
  Age: 55 Year
  Sex: Male

DRUGS (22)
  1. POMALYST [Suspect]
     Active Substance: POMALIDOMIDE
     Indication: PLASMA CELL MYELOMA
     Dosage: 4MG, DAILY X21D/28D, ORALLY
     Route: 048
     Dates: start: 201403
  2. CIPROFLOXACIN. [Concomitant]
     Active Substance: CIPROFLOXACIN
  3. BENZONATATE. [Concomitant]
     Active Substance: BENZONATATE
  4. HYZAAR [Concomitant]
     Active Substance: HYDROCHLOROTHIAZIDE\LOSARTAN POTASSIUM
  5. ZOVIRAX [Concomitant]
     Active Substance: ACYCLOVIR
  6. TRAZODONE [Concomitant]
     Active Substance: TRAZODONE HYDROCHLORIDE
  7. LOMOTIL [Concomitant]
     Active Substance: ATROPINE SULFATE\DIPHENOXYLATE HYDROCHLORIDE
  8. LOFIBRA [Concomitant]
     Active Substance: FENOFIBRATE
  9. FLONASE [Concomitant]
     Active Substance: FLUTICASONE PROPIONATE
  10. SOLU-CORTEF [Concomitant]
     Active Substance: HYDROCORTISONE SODIUM SUCCINATE
  11. CEFPODOXIME [Concomitant]
     Active Substance: CEFPODOXIME
  12. AZELASTINE [Concomitant]
     Active Substance: AZELASTINE
  13. ASA [Concomitant]
     Active Substance: ASPIRIN
  14. SODIUM CHLORIDE. [Concomitant]
     Active Substance: SODIUM CHLORIDE
  15. AREDIA [Concomitant]
     Active Substance: PAMIDRONATE DISODIUM
  16. ATIVAN [Concomitant]
     Active Substance: LORAZEPAM
  17. BENADRYL [Concomitant]
     Active Substance: DIPHENHYDRAMINE HYDROCHLORIDE
  18. TYLENOL [Concomitant]
     Active Substance: ACETAMINOPHEN
  19. HYDROCODONE ACETAMINOPHEN [Concomitant]
     Active Substance: ACETAMINOPHEN\HYDROCODONE BITARTRATE
  20. CODEINE/GUAIFENESIN [Concomitant]
     Active Substance: CODEINE\GUAIFENESIN
  21. DECADRON [Concomitant]
     Active Substance: DEXAMETHASONE
  22. AZITHROMYCIN [Concomitant]
     Active Substance: AZITHROMYCIN ANHYDROUS

REACTIONS (2)
  - Rash [None]
  - Pneumonia [None]

NARRATIVE: CASE EVENT DATE: 20141204
